FAERS Safety Report 9973698 (Version 1)
Quarter: 2014Q1

REPORT INFORMATION
  Report Type: Spontaneous
  Country: NL (occurrence: NL)
  Receive Date: 20140306
  Receipt Date: 20140306
  Transmission Date: 20141002
  Serious: Yes (Other)
  Sender: FDA-Public Use
  Company Number: NL-WATSON-2014-03581

PATIENT
  Age: 75 Year
  Sex: Female

DRUGS (3)
  1. SOTALOL [Suspect]
     Indication: PRODUCT USED FOR UNKNOWN INDICATION
     Dosage: 40 MG, BID (2 KEER PER DAG 1 STUK(S))
     Route: 048
     Dates: start: 2005
  2. LOSARTAN [Suspect]
     Indication: PRODUCT USED FOR UNKNOWN INDICATION
     Dosage: 50 MG, DAILY; 1 KEER PER DAG 1 STUK(S)
     Route: 048
     Dates: start: 2005
  3. ACETYLSALICYLIC ACID [Suspect]
     Indication: PRODUCT USED FOR UNKNOWN INDICATION
     Dosage: 80 MG, DAILY; 1 KEER PER DAG 1 STUK(S)
     Route: 048
     Dates: start: 2007

REACTIONS (1)
  - Psoriasis [Not Recovered/Not Resolved]
